FAERS Safety Report 11887872 (Version 1)
Quarter: 2016Q1

REPORT INFORMATION
  Report Type: Spontaneous
  Country: US (occurrence: None)
  Receive Date: 20160104
  Receipt Date: 20160104
  Transmission Date: 20160526
  Serious: Yes (Death, Hospitalization, Disabling, Other)
  Sender: FDA-Public Use
  Company Number: None

PATIENT
  Age: 81 Year
  Sex: Female
  Weight: 46.72 kg

DRUGS (3)
  1. ATIVAN [Suspect]
     Active Substance: LORAZEPAM
  2. ZYPREXA [Suspect]
     Active Substance: OLANZAPINE
     Indication: ABNORMAL BEHAVIOUR
  3. DEPAKOTE [Suspect]
     Active Substance: DIVALPROEX SODIUM

REACTIONS (14)
  - Tremor [None]
  - Off label use [None]
  - Humerus fracture [None]
  - Anxiety [None]
  - Musculoskeletal stiffness [None]
  - Restlessness [None]
  - Gait disturbance [None]
  - Dyskinesia [None]
  - Coma [None]
  - Contraindicated drug administered [None]
  - Fall [None]
  - Urinary incontinence [None]
  - Muscular weakness [None]
  - Bedridden [None]

NARRATIVE: CASE EVENT DATE: 20150723
